FAERS Safety Report 7434058-2 (Version None)
Quarter: 2011Q2

REPORT INFORMATION
  Report Type: 
  Country: None (occurrence: None)
  Receive Date: 20110425
  Receipt Date: 20110414
  Transmission Date: 20111010
  Serious: Yes (Other)
  Sender: FDA-Public Use
  Company Number: PL-ASTELLAS-2011EU002099

PATIENT
  Sex: Male

DRUGS (2)
  1. PIMECROLIMUS [Concomitant]
     Indication: DERMATITIS ATOPIC
     Dosage: UNK
     Route: 065
     Dates: start: 20051201
  2. TACROLIMUS [Suspect]
     Indication: DERMATITIS ATOPIC
     Dosage: 0.1 %, PRN
     Route: 061
     Dates: start: 20051207

REACTIONS (2)
  - OFF LABEL USE [None]
  - TONSILLAR HYPERTROPHY [None]
